FAERS Safety Report 23126574 (Version 2)
Quarter: 2025Q1

REPORT INFORMATION
  Report Type: Report from Study
  Country: US (occurrence: US)
  Receive Date: 20231030
  Receipt Date: 20250122
  Transmission Date: 20250408
  Serious: Yes (Death, Hospitalization, Other)
  Sender: TAKEDA
  Company Number: US-TAKEDA-2022TUS005168

PATIENT
  Sex: Female

DRUGS (4)
  1. TEDUGLUTIDE [Suspect]
     Active Substance: TEDUGLUTIDE
     Indication: Product used for unknown indication
     Dosage: UNK UNK, QD
     Dates: start: 20191210
  2. TEDUGLUTIDE [Suspect]
     Active Substance: TEDUGLUTIDE
  3. TEDUGLUTIDE [Suspect]
     Active Substance: TEDUGLUTIDE
  4. TEDUGLUTIDE [Suspect]
     Active Substance: TEDUGLUTIDE

REACTIONS (3)
  - Death [Fatal]
  - Dehydration [Recovering/Resolving]
  - Weight decreased [Recovering/Resolving]
